FAERS Safety Report 25963184 (Version 1)
Quarter: 2025Q4

REPORT INFORMATION
  Report Type: Spontaneous
  Country: US (occurrence: US)
  Receive Date: 20251027
  Receipt Date: 20251027
  Transmission Date: 20260118
  Serious: Yes (Death, Other)
  Sender: SANOFI AVENTIS
  Company Number: US-DialogSolutions-SAAVPROD-PI830602-C31

PATIENT
  Sex: Male

DRUGS (3)
  1. ANTI-THYMOCYTE GLOBULIN (RABBIT) NOS [Suspect]
     Active Substance: LAPINE T-LYMPHOCYTE IMMUNE GLOBULIN
  2. CYCLOPHOSPHAMIDE [Suspect]
     Active Substance: CYCLOPHOSPHAMIDE
     Indication: Chronic granulomatous disease
     Dosage: 200 MG/KG
  3. BUSULFAN [Suspect]
     Active Substance: BUSULFAN
     Indication: Chronic granulomatous disease
     Dosage: 16 MG/KG

REACTIONS (3)
  - Pulmonary haemorrhage [Fatal]
  - Bronchopulmonary aspergillosis [Fatal]
  - Off label use [Unknown]
